FAERS Safety Report 16345631 (Version 2)
Quarter: 2019Q3

REPORT INFORMATION
  Report Type: Spontaneous
  Country: DE (occurrence: DE)
  Receive Date: 20190523
  Receipt Date: 20190806
  Transmission Date: 20191004
  Serious: Yes (Hospitalization, Other)
  Sender: FDA-Public Use
  Company Number: DE-SA-2019SA135331

PATIENT
  Age: 38 Year
  Sex: Female
  Weight: 54 kg

DRUGS (2)
  1. SERTRALINA [SERTRALINE] [Concomitant]
     Indication: DEPRESSION
     Dosage: 50 MG, QID
     Route: 048
  2. LEMTRADA [Suspect]
     Active Substance: ALEMTUZUMAB
     Indication: MULTIPLE SCLEROSIS
     Dosage: UNK
     Route: 041
     Dates: start: 20180816, end: 20180820

REACTIONS (11)
  - Weight decreased [Unknown]
  - Headache [Unknown]
  - Dysarthria [Unknown]
  - Pain in extremity [Unknown]
  - Subarachnoid haemorrhage [Recovered/Resolved]
  - Quadriparesis [Unknown]
  - Muscle spasticity [Unknown]
  - Pain [Unknown]
  - Decreased appetite [Unknown]
  - Gait disturbance [Unknown]
  - Neck pain [Unknown]

NARRATIVE: CASE EVENT DATE: 2019
